FAERS Safety Report 14400405 (Version 2)
Quarter: 2018Q1

REPORT INFORMATION
  Report Type: Spontaneous
  Country: US (occurrence: US)
  Receive Date: 20180117
  Receipt Date: 20180308
  Transmission Date: 20180509
  Serious: Yes (Death, Hospitalization)
  Sender: FDA-Public Use
  Company Number: US-JNJFOC-20171202959

PATIENT
  Age: 81 Year
  Sex: Male

DRUGS (1)
  1. XARELTO [Suspect]
     Active Substance: RIVAROXABAN
     Indication: DEEP VEIN THROMBOSIS
     Route: 048
     Dates: start: 20140318, end: 20151204

REACTIONS (2)
  - Cerebral haemorrhage [Unknown]
  - Cerebral infarction [Fatal]

NARRATIVE: CASE EVENT DATE: 20151205
